FAERS Safety Report 18002029 (Version 1)
Quarter: 2020Q3

REPORT INFORMATION
  Report Type: Spontaneous
  Country: US (occurrence: US)
  Receive Date: 20200710
  Receipt Date: 20200710
  Transmission Date: 20201103
  Serious: No
  Sender: FDA-Public Use
  Company Number: NVSC2020US186844

PATIENT
  Sex: Female
  Weight: 56.7 kg

DRUGS (2)
  1. TRAMETINIB [Suspect]
     Active Substance: TRAMETINIB
     Indication: GLIOBLASTOMA
     Dosage: 3 DF, QD
     Route: 048
  2. DABRAFENIB [Suspect]
     Active Substance: DABRAFENIB
     Indication: GLIOBLASTOMA
     Dosage: 2 DF, QD (FOR 84 DAYS)
     Route: 048

REACTIONS (1)
  - Drug resistance [Unknown]
